FAERS Safety Report 25002928 (Version 2)
Quarter: 2025Q1

REPORT INFORMATION
  Report Type: Report from Study
  Country: BR (occurrence: BR)
  Receive Date: 20250224
  Receipt Date: 20250225
  Transmission Date: 20250409
  Serious: No
  Sender: BIOGEN
  Company Number: BR-BIOGEN-2025BI01301338

PATIENT
  Sex: Female
  Weight: 63 kg

DRUGS (1)
  1. TYSABRI [Suspect]
     Active Substance: NATALIZUMAB
     Indication: Multiple sclerosis
     Route: 050
     Dates: start: 201003

REACTIONS (1)
  - Paraesthesia [Unknown]
